FAERS Safety Report 7892616-5 (Version None)
Quarter: 2011Q4

REPORT INFORMATION
  Report Type: 
  Country: None (occurrence: None)
  Receive Date: 20111102
  Receipt Date: 20111012
  Transmission Date: 20120403
  Serious: Yes (Hospitalization)
  Sender: FDA-Public Use
  Company Number: 2011PROUSA00708

PATIENT
  Age: 60 Year
  Sex: Male

DRUGS (8)
  1. PROVENGE [Suspect]
     Indication: PROSTATE CANCER METASTATIC
     Dosage: 250 ML, SINGLE, INTRAVENOUS
     Route: 042
     Dates: start: 20111003, end: 20111003
  2. PROVENGE [Suspect]
     Indication: PROSTATE CANCER METASTATIC
     Dosage: 250 ML, SINGLE, INTRAVENOUS
     Route: 042
     Dates: start: 20110919, end: 20110919
  3. CASODEX [Concomitant]
  4. LUPRON [Concomitant]
  5. NEURONTIN [Concomitant]
  6. LASIX [Concomitant]
  7. FLOMAX [Concomitant]
  8. PROVENGE [Suspect]

REACTIONS (2)
  - VOMITING [None]
  - CHEST PAIN [None]
